FAERS Safety Report 16099759 (Version 6)
Quarter: 2021Q2

REPORT INFORMATION
  Report Type: Other
  Country: GB (occurrence: GB)
  Receive Date: 20190321
  Receipt Date: 20210610
  Transmission Date: 20210716
  Serious: Yes (Other)
  Sender: FDA-Public Use
  Company Number: GB-CELLTRION INC.-2019GB019328

PATIENT

DRUGS (18)
  1. DESUNIN [Concomitant]
     Active Substance: CHOLECALCIFEROL
     Dosage: 1 UNK, QD (DOSE FORM 245)
     Route: 048
     Dates: start: 20170203
  2. TRASTUZUMAB (UNKNOWN) [Suspect]
     Active Substance: TRASTUZUMAB
     Indication: BREAST CANCER METASTATIC
     Dosage: 620 MG (LOADING DOSE), UNK (DOSE FORM: 230)
     Route: 041
     Dates: start: 20151012
  3. PACLITAXEL. [Suspect]
     Active Substance: PACLITAXEL
     Indication: BREAST CANCER METASTATIC
     Dosage: 140 MG, UNK
     Route: 042
     Dates: start: 20151125, end: 20160302
  4. PERTUZUMAB. [Suspect]
     Active Substance: PERTUZUMAB
     Indication: BREAST CANCER METASTATIC
     Dosage: 840 MG LOADING DOSE (DOSE FORM 230)
     Route: 042
     Dates: start: 20151012
  5. PERTUZUMAB. [Suspect]
     Active Substance: PERTUZUMAB
     Dosage: 420 MG MAINTENANCE DOSE MOST RECENT DOSE PRIOR TO SAE (DOSE FORM 230)
     Route: 042
     Dates: start: 20151102
  6. RISEDRONIC ACID [Concomitant]
     Active Substance: RISEDRONIC ACID
     Indication: OSTEOPOROSIS PROPHYLAXIS
  7. TRASTUZUMAB (UNKNOWN) [Suspect]
     Active Substance: TRASTUZUMAB
     Dosage: 6 MG/KG (MAINTENANCE DOSE), Q3WK (DOSE FORM: 230)
     Route: 042
     Dates: start: 20151102
  8. DEXAMETHASONE. [Concomitant]
     Active Substance: DEXAMETHASONE
     Dosage: UNK
  9. DESUNIN [Concomitant]
     Active Substance: CHOLECALCIFEROL
     Indication: OSTEOPOROSIS
     Dosage: 800 IU, QD
     Route: 048
     Dates: start: 20160821, end: 201611
  10. RISEDRONATE [Concomitant]
     Active Substance: RISEDRONATE SODIUM
     Indication: PROPHYLAXIS
     Dosage: 35 G, (DOSE FORM 245; GIVEN FOR THE PREVENTION OSTEOPOROSIS IN POSTMENOPAUSAL WOMEN)
     Route: 048
     Dates: start: 20101007, end: 20160807
  11. RISEDRONIC ACID [Concomitant]
     Active Substance: RISEDRONIC ACID
     Indication: PROPHYLAXIS
     Dosage: 35 G, UNK (GIVEN FOR THE PREVENTION OSTEOPOROSIS IN POSTMENOPAUSAL WOMEN) (DOSE FORM: 245)
     Route: 048
     Dates: start: 20101007, end: 20160807
  12. ALENDRONIC ACID [Concomitant]
     Active Substance: ALENDRONIC ACID
     Indication: OSTEOPOROSIS
     Dosage: 70 MG, QWK
     Route: 065
     Dates: start: 20160821, end: 201611
  13. PARACETAMOL [Concomitant]
     Active Substance: ACETAMINOPHEN
     Indication: PREMEDICATION
     Dosage: 500 MG, UNK (PRE MEDICATION)
     Route: 048
     Dates: start: 20151012
  14. DOCETAXEL. [Suspect]
     Active Substance: DOCETAXEL
     Indication: BREAST CANCER METASTATIC
     Dosage: 130 MG, Q3WK
     Route: 042
     Dates: start: 20151013, end: 20151013
  15. LOPERAMIDE HYDROCHLORIDE. [Concomitant]
     Active Substance: LOPERAMIDE HYDROCHLORIDE
     Dosage: 2 MG, UNK (DOSE FORM: 245)
     Route: 048
     Dates: start: 20151015
  16. ZOLEDRONATE [Concomitant]
     Active Substance: ZOLEDRONIC ACID
     Indication: OSTEOPOROSIS
     Dosage: 5 MG EVERY 6 MINUTE
     Route: 042
     Dates: start: 20170203
  17. CYCLIZINE [Concomitant]
     Active Substance: CYCLIZINE
     Dosage: UNK
  18. ADCAL D3 [Concomitant]
     Active Substance: CALCIUM CARBONATE\CHOLECALCIFEROL
     Indication: PROPHYLAXIS
     Dosage: 1.5 GRAM, GIVEN FOR THE PREVENTION OF VITAMIN D DEFICIENCY
     Route: 048
     Dates: start: 20101007

REACTIONS (10)
  - Lower respiratory tract infection [Recovered/Resolved]
  - Urinary tract infection [Recovered/Resolved]
  - Rib fracture [Recovered/Resolved]
  - Urticaria [Recovered/Resolved]
  - Rash [Recovered/Resolved]
  - Off label use [Unknown]
  - Lower respiratory tract infection [Recovered/Resolved]
  - Neuropathy peripheral [Recovered/Resolved]
  - Musculoskeletal chest pain [Not Recovered/Not Resolved]
  - Mouth ulceration [Recovered/Resolved]

NARRATIVE: CASE EVENT DATE: 20151211
